FAERS Safety Report 14606581 (Version 2)
Quarter: 2018Q1

REPORT INFORMATION
  Report Type: Report from Study
  Country: None (occurrence: CA)
  Receive Date: 20180307
  Receipt Date: 20180326
  Transmission Date: 20180509
  Serious: Yes (Hospitalization, Disabling)
  Sender: FDA-Public Use
  Company Number: CA-ABBVIE-18K-028-2277171-00

PATIENT
  Sex: Female

DRUGS (1)
  1. HUMIRA [Suspect]
     Active Substance: ADALIMUMAB
     Indication: ANKYLOSING SPONDYLITIS
     Route: 058
     Dates: start: 20141015

REACTIONS (5)
  - Disability [Unknown]
  - Unevaluable event [Not Recovered/Not Resolved]
  - Mental disorder [Not Recovered/Not Resolved]
  - Urinary tract infection [Recovered/Resolved]
  - Emotional disorder [Not Recovered/Not Resolved]

NARRATIVE: CASE EVENT DATE: 2018
